FAERS Safety Report 23367324 (Version 1)
Quarter: 2024Q1

REPORT INFORMATION
  Report Type: Spontaneous
  Country: US (occurrence: US)
  Receive Date: 20240104
  Receipt Date: 20240104
  Transmission Date: 20240410
  Serious: No
  Sender: FDA-Public Use
  Company Number: US-MARINUS PHARMACEUTICALS, INC.-MAR2023000122

PATIENT

DRUGS (2)
  1. ZTALMY [Suspect]
     Active Substance: GANAXOLONE
     Indication: Product used for unknown indication
     Dosage: 600 MILLIGRAM (12 ML), TID
     Route: 048
  2. ZTALMY [Suspect]
     Active Substance: GANAXOLONE
     Dosage: 300 MILLIGRAM (6 ML), TID
     Route: 048

REACTIONS (2)
  - Tremor [Unknown]
  - Somnolence [Unknown]
